FAERS Safety Report 7200524-8 (Version None)
Quarter: 2010Q4

REPORT INFORMATION
  Report Type: 
  Country: None (occurrence: None)
  Receive Date: 20101228
  Receipt Date: 20101220
  Transmission Date: 20110411
  Serious: Yes (Hospitalization)
  Sender: FDA-Public Use
  Company Number: FR-PFIZER INC-2006054255

PATIENT
  Age: 76 Year
  Sex: Female
  Weight: 67 kg

DRUGS (20)
  1. SOLU-MEDROL [Suspect]
     Route: 030
     Dates: start: 20051031, end: 20051106
  2. TRAMADOL HYDROCHLORIDE [Suspect]
     Route: 048
     Dates: start: 20051031, end: 20051115
  3. PANTOPRAZOLE [Suspect]
     Route: 048
     Dates: start: 20050922, end: 20051115
  4. ALTIM [Suspect]
     Route: 013
     Dates: start: 20050930, end: 20051101
  5. TETRAZEPAM [Suspect]
     Route: 048
     Dates: start: 20051031, end: 20051115
  6. COAPROVEL [Suspect]
     Route: 048
     Dates: start: 20040615, end: 20051214
  7. CORTIVAZOL [Suspect]
  8. VENLAFAXINE HYDROCHLORIDE [Concomitant]
  9. ANETHOLE TRITHIONE [Concomitant]
     Dates: start: 20050601
  10. SELEGILINE HYDROCHLORIDE [Concomitant]
  11. CLONAZEPAM [Concomitant]
  12. FUROSEMIDE [Concomitant]
  13. DILTIAZEM HYDROCHLORIDE [Concomitant]
  14. MACROGOL [Concomitant]
  15. DIALGIREX [Concomitant]
  16. PARACETAMOL [Concomitant]
  17. CALCITONIN SALMON [Concomitant]
     Dates: start: 20051116, end: 20051128
  18. DOMPERIDONE [Concomitant]
     Dates: start: 20051116, end: 20051128
  19. LAMALINE (FRANCE) [Concomitant]
     Dates: start: 20051116, end: 20051128
  20. HEXABRIX [Concomitant]
     Dates: start: 20051101

REACTIONS (1)
  - SYSTEMIC LUPUS ERYTHEMATOSUS RASH [None]
